FAERS Safety Report 15544433 (Version 2)
Quarter: 2018Q4

REPORT INFORMATION
  Report Type: Report from Study
  Country: NL (occurrence: NL)
  Receive Date: 20181024
  Receipt Date: 20181102
  Transmission Date: 20190205
  Serious: Yes (Death, Hospitalization)
  Sender: FDA-Public Use
  Company Number: NL-BEH-2018095914

PATIENT
  Sex: Female

DRUGS (1)
  1. HIZENTRA [Suspect]
     Active Substance: HUMAN IMMUNOGLOBULIN G
     Indication: PRODUCT USED FOR UNKNOWN INDICATION
     Dosage: UNK, TIW
     Route: 058

REACTIONS (3)
  - Acute kidney injury [Unknown]
  - Meningitis bacterial [Unknown]
  - Death [Fatal]
